FAERS Safety Report 5116260-8 (Version None)
Quarter: 2006Q3

REPORT INFORMATION
  Report Type: 
  Country: None (occurrence: None)
  Receive Date: 20060927
  Receipt Date: 20060922
  Transmission Date: 20061208
  Serious: Yes (Hospitalization)
  Sender: FDA-Public Use
  Company Number: 463602

PATIENT
  Age: 61 Year
  Sex: Female

DRUGS (11)
  1. DILATREND [Suspect]
     Dosage: 12.5MG TWICE PER DAY
     Route: 048
  2. LANTUS [Suspect]
     Route: 058
     Dates: end: 20060520
  3. ACTRAPID [Suspect]
     Route: 058
     Dates: end: 20060520
  4. TOREM [Concomitant]
  5. ENALAPRIL [Concomitant]
  6. CARDURA [Concomitant]
  7. ADALAT [Concomitant]
  8. PLAVIX [Concomitant]
  9. SELIPRAN [Concomitant]
  10. CITALOPRAM HYDROBROMIDE [Concomitant]
  11. SINTROM [Concomitant]

REACTIONS (3)
  - BRADYCARDIA [None]
  - HYPOGLYCAEMIC COMA [None]
  - HYPOTHERMIA [None]
